FAERS Safety Report 24349451 (Version 1)
Quarter: 2024Q3

REPORT INFORMATION
  Report Type: Spontaneous
  Country: CN (occurrence: CN)
  Receive Date: 20240923
  Receipt Date: 20240923
  Transmission Date: 20241017
  Serious: Yes (Hospitalization, Other)
  Sender: BAXTER
  Company Number: None

PATIENT
  Age: 52 Year
  Sex: Male
  Weight: 63 kg

DRUGS (13)
  1. CYCLOPHOSPHAMIDE [Suspect]
     Active Substance: CYCLOPHOSPHAMIDE
     Indication: Medulloblastoma
     Dosage: 900 MG, ONE TIME IN ONE DAY, DILUTED WITH 0.9% SODIUM CHLORIDE 100ML, D1
     Route: 041
     Dates: start: 20240830, end: 20240830
  2. CYCLOPHOSPHAMIDE [Suspect]
     Active Substance: CYCLOPHOSPHAMIDE
     Indication: Chemotherapy
  3. CYCLOPHOSPHAMIDE [Suspect]
     Active Substance: CYCLOPHOSPHAMIDE
     Indication: Neoplasm
  4. SODIUM CHLORIDE [Suspect]
     Active Substance: SODIUM CHLORIDE
     Indication: Medication dilution
     Dosage: 20 ML, ONE TIME IN ONE DAY, D1, STRENGTH: 0.9%, USED TO DILUTE 2 MG OF VINCRISTINE SULFATE
     Route: 042
     Dates: start: 20240830, end: 20240830
  5. SODIUM CHLORIDE [Suspect]
     Active Substance: SODIUM CHLORIDE
     Dosage: 100 ML, ONE TIME IN ONE DAY, D1, STRENGTH: 0.9%, USED TO DILUTE 900 MG OF CYCLOPHOSPHAMIDE
     Route: 041
     Dates: start: 20240830, end: 20240830
  6. SODIUM CHLORIDE [Suspect]
     Active Substance: SODIUM CHLORIDE
     Dosage: 250 ML, ONE TIME IN ONE DAY, D1-2, STRENGTH: 0.9%, USED TO DILUTE 40 MG OF CISPLATIN
     Route: 041
     Dates: start: 20240830, end: 20240831
  7. SODIUM CHLORIDE [Suspect]
     Active Substance: SODIUM CHLORIDE
     Dosage: 250 ML, ONE TIME IN ONE DAY, D3, STRENGTH: 0.9%, USED TO DILUTE 20 MG OF CISPLATIN
     Route: 041
     Dates: start: 20240901, end: 20240901
  8. VINCRISTINE SULFATE [Suspect]
     Active Substance: VINCRISTINE SULFATE
     Indication: Medulloblastoma
     Dosage: 2 MG, ONE TIME IN ONE DAY, D1, DILUTED WITH 20 ML OF 0.9% SODIUM CHLORIDE
     Route: 042
     Dates: start: 20240830, end: 20240830
  9. VINCRISTINE SULFATE [Suspect]
     Active Substance: VINCRISTINE SULFATE
     Indication: Chemotherapy
  10. VINCRISTINE SULFATE [Suspect]
     Active Substance: VINCRISTINE SULFATE
     Indication: Neoplasm
  11. CISPLATIN [Suspect]
     Active Substance: CISPLATIN
     Indication: Medulloblastoma
     Dosage: 40 MG, ONE TIME IN ONE DAY, D1-2, DILUTED WITH 250 ML OF 0.9% SODIUM CHLORIDE
     Route: 041
     Dates: start: 20240830, end: 20240831
  12. CISPLATIN [Suspect]
     Active Substance: CISPLATIN
     Indication: Chemotherapy
     Dosage: 20 MG, ONE TIME IN ONE DAY, D3, DILUTED WITH 250 ML OF 0.9% SODIUM CHLORIDE
     Route: 041
     Dates: start: 20240901, end: 20240901
  13. CISPLATIN [Suspect]
     Active Substance: CISPLATIN
     Indication: Neoplasm

REACTIONS (1)
  - Myelosuppression [Recovering/Resolving]

NARRATIVE: CASE EVENT DATE: 20240905
